FAERS Safety Report 5999710-4 (Version None)
Quarter: 2008Q4

REPORT INFORMATION
  Report Type: 
  Country: None (occurrence: None)
  Receive Date: 20081210
  Receipt Date: 20080416
  Transmission Date: 20090506
  Serious: Yes (Other)
  Sender: FDA-Public Use
  Company Number: 47441

PATIENT
  Age: 56 Year
  Sex: Male
  Weight: 97.0698 kg

DRUGS (1)
  1. CISPLATIN [Suspect]
     Dates: start: 20080412

REACTIONS (1)
  - ILL-DEFINED DISORDER [None]
